FAERS Safety Report 15873642 (Version 1)
Quarter: 2019Q1

REPORT INFORMATION
  Report Type: Other
  Country: US (occurrence: US)
  Receive Date: 20190126
  Receipt Date: 20190126
  Transmission Date: 20190417
  Serious: No
  Sender: FDA-Public Use
  Company Number: US-ACORDA-ACO_150504_2018

PATIENT
  Age: 67 Year
  Sex: Female

DRUGS (1)
  1. AMPYRA [Suspect]
     Active Substance: DALFAMPRIDINE
     Indication: MULTIPLE SCLEROSIS
     Dosage: 10 MG, BID
     Route: 048
     Dates: start: 20180509

REACTIONS (15)
  - Depression [Unknown]
  - Back pain [Unknown]
  - Fatigue [Unknown]
  - Blood creatinine increased [Unknown]
  - Malaise [Unknown]
  - Impaired driving ability [Unknown]
  - Adverse drug reaction [Unknown]
  - Tremor [Unknown]
  - Condition aggravated [Unknown]
  - Balance disorder [Unknown]
  - Feeling abnormal [Unknown]
  - Mental impairment [Unknown]
  - Multiple sclerosis relapse [Unknown]
  - Gait disturbance [Unknown]
  - Asthenia [Unknown]

NARRATIVE: CASE EVENT DATE: 20180511
